FAERS Safety Report 5009819-X (Version None)
Quarter: 2006Q2

REPORT INFORMATION
  Report Type: 
  Country: None (occurrence: None)
  Receive Date: 20060522
  Receipt Date: 20060510
  Transmission Date: 20061013
  Serious: Yes (Other)
  Sender: FDA-Public Use
  Company Number: 2006064307

PATIENT
  Age: 21 Year
  Sex: Male

DRUGS (1)
  1. EPAMIN (PHENYTOIN SODIUM) [Suspect]
     Indication: CONVULSION
     Dosage: 15 CC (5 CC, 3 IN 1 D)

REACTIONS (1)
  - CONVULSION [None]
